FAERS Safety Report 24996314 (Version 1)
Quarter: 2025Q1

REPORT INFORMATION
  Report Type: Report from Study
  Country: US (occurrence: US)
  Receive Date: 20250221
  Receipt Date: 20250221
  Transmission Date: 20250408
  Serious: Yes (Other)
  Sender: ALEXION PHARMACEUTICALS
  Company Number: US-AstraZeneca-CH-00808676A

PATIENT

DRUGS (1)
  1. OLAPARIB [Suspect]
     Active Substance: OLAPARIB
     Route: 065

REACTIONS (7)
  - Terminal state [Unknown]
  - Hypoacusis [Unknown]
  - Swelling [Unknown]
  - Pancreatitis [Unknown]
  - Hepatic cancer [Unknown]
  - Pancreatic carcinoma [Unknown]
  - Skin cancer metastatic [Unknown]
